FAERS Safety Report 21931979 (Version 2)
Quarter: 2023Q2

REPORT INFORMATION
  Report Type: Report from Study
  Country: BR (occurrence: BR)
  Receive Date: 20230131
  Receipt Date: 20230426
  Transmission Date: 20230722
  Serious: Yes (Other)
  Sender: FDA-Public Use
  Company Number: BR-002147023-NVSC2022BR107435

PATIENT
  Sex: Male

DRUGS (5)
  1. COSENTYX [Suspect]
     Active Substance: SECUKINUMAB
     Indication: Psoriatic arthropathy
     Dosage: 150 MG (??-MAY-2021 AND JUN-2021)
     Route: 065
  2. COSENTYX [Suspect]
     Active Substance: SECUKINUMAB
     Dosage: 300 MG, QMO
     Route: 058
  3. COSENTYX [Suspect]
     Active Substance: SECUKINUMAB
     Dosage: 300 MG, QMO
     Route: 058
  4. COSENTYX [Suspect]
     Active Substance: SECUKINUMAB
     Dosage: 300 MG (FINISHED THE ATTACK DOSES)
     Route: 065
     Dates: start: 20220601
  5. COSENTYX [Suspect]
     Active Substance: SECUKINUMAB
     Dosage: 300 MG, QMO
     Route: 065

REACTIONS (21)
  - Pneumonia [Recovered/Resolved with Sequelae]
  - Pyrexia [Recovered/Resolved]
  - Lung disorder [Recovered/Resolved]
  - Asthenia [Recovering/Resolving]
  - Myalgia [Recovering/Resolving]
  - Feeling abnormal [Unknown]
  - Visual impairment [Unknown]
  - Muscle spasms [Recovering/Resolving]
  - Influenza [Recovered/Resolved]
  - Cough [Recovered/Resolved]
  - Gait disturbance [Unknown]
  - Obesity [Unknown]
  - Pain [Unknown]
  - Fall [Recovered/Resolved]
  - Dry skin [Unknown]
  - Catarrh [Not Recovered/Not Resolved]
  - Fatigue [Recovering/Resolving]
  - Nail injury [Unknown]
  - Rebound psoriasis [Unknown]
  - Skin exfoliation [Recovering/Resolving]
  - Pain in extremity [Not Recovered/Not Resolved]

NARRATIVE: CASE EVENT DATE: 20210101
